FAERS Safety Report 16209518 (Version 2)
Quarter: 2019Q2

REPORT INFORMATION
  Report Type: Spontaneous
  Country: FR (occurrence: FR)
  Receive Date: 20190417
  Receipt Date: 20190530
  Transmission Date: 20190711
  Serious: Yes (Life-Threatening, Hospitalization, Other)
  Sender: FDA-Public Use
  Company Number: FR-MYLANLABS-2019M1033344

PATIENT
  Age: 57 Year
  Sex: Female

DRUGS (13)
  1. ZUCLOPENTHIXOL ACETATE [Interacting]
     Active Substance: ZUCLOPENTHIXOL ACETATE
     Indication: PRODUCT USED FOR UNKNOWN INDICATION
     Dosage: 100 MILLIGRAM
     Route: 030
  2. BISOPROLOL [Concomitant]
     Active Substance: BISOPROLOL
     Dosage: UNK
  3. LERCANIDIPINE [Suspect]
     Active Substance: LERCANIDIPINE
     Indication: HYPERTENSION
     Dosage: UNK
  4. ESCITALOPRAM [Suspect]
     Active Substance: ESCITALOPRAM OXALATE
     Indication: DEPRESSIVE SYMPTOM
     Dosage: 10 MILLIGRAM, QD
  5. ZUCLOPENTHIXOL DECANOATE [Interacting]
     Active Substance: ZUCLOPENTHIXOL DECANOATE
     Indication: SCHIZOAFFECTIVE DISORDER
     Dosage: 300 MILLIGRAM, MONTHLY
  6. CYAMEMAZINE [Suspect]
     Active Substance: CYAMEMAZINE
     Indication: SCHIZOAFFECTIVE DISORDER
     Dosage: 750 MILLIGRAM, TOTAL
  7. CYAMEMAZINE [Suspect]
     Active Substance: CYAMEMAZINE
     Dosage: 25 MG TO 75 MG DAILY
  8. LERCANIDIPINE [Suspect]
     Active Substance: LERCANIDIPINE
     Dosage: 300 MILLIGRAM, TOTAL
  9. ATORVASTATIN [Concomitant]
     Active Substance: ATORVASTATIN
     Dosage: UNK
  10. CYAMEMAZINE [Suspect]
     Active Substance: CYAMEMAZINE
     Dosage: 50 MILLIGRAM, QD
  11. METFORMIN [Concomitant]
     Active Substance: METFORMIN HYDROCHLORIDE
     Indication: TYPE 2 DIABETES MELLITUS
     Dosage: UNK
  12. ZUCLOPENTHIXOL DIHYDROCHLORIDE [Interacting]
     Active Substance: ZUCLOPENTHIXOL HYDROCHLORIDE
     Indication: SCHIZOAFFECTIVE DISORDER
     Dosage: TITRATED FROM 5 TO 40MG DAILY OVER 2 WEEKS
  13. CYAMEMAZINE [Suspect]
     Active Substance: CYAMEMAZINE
     Dosage: 50 MG TO 100 MG DAILY

REACTIONS (9)
  - Dehydration [Unknown]
  - Vasoplegia syndrome [Recovered/Resolved]
  - Intentional overdose [Unknown]
  - Neuroleptic malignant syndrome [Recovered/Resolved]
  - Suicidal ideation [Unknown]
  - Drug level increased [Unknown]
  - Accidental overdose [Unknown]
  - Drug interaction [Unknown]
  - Product administration error [Unknown]
